FAERS Safety Report 25388882 (Version 1)
Quarter: 2025Q2

REPORT INFORMATION
  Report Type: Report from Study
  Country: US (occurrence: US)
  Receive Date: 20250603
  Receipt Date: 20250603
  Transmission Date: 20250716
  Serious: No
  Sender: ACADIA PHARMACEUTICALS
  Company Number: US-ACADIA PHARMACEUTICALS INC.-ACA-2025-PIM-006511

PATIENT
  Age: 76 Year
  Sex: Male

DRUGS (5)
  1. NUPLAZID [Suspect]
     Active Substance: PIMAVANSERIN TARTRATE
     Indication: Hallucination, visual
     Dosage: 34 MILLIGRAM, DAILY
     Route: 048
     Dates: start: 20240720
  2. GEMTESA [Concomitant]
     Active Substance: VIBEGRON
  3. GOCOVRI [Concomitant]
     Active Substance: AMANTADINE
  4. PROBIOTICS [PROBIOTICS NOS] [Concomitant]
  5. MIDODRINE [Concomitant]
     Active Substance: MIDODRINE

REACTIONS (1)
  - Drug ineffective [Unknown]

NARRATIVE: CASE EVENT DATE: 20240720
